FAERS Safety Report 7795718-7 (Version None)
Quarter: 2011Q4

REPORT INFORMATION
  Report Type: 
  Country: None (occurrence: None)
  Receive Date: 20111004
  Receipt Date: 20110930
  Transmission Date: 20120403
  Serious: Yes (Life-Threatening, Hospitalization, Disabling, Other)
  Sender: FDA-Public Use
  Company Number: US-BRISTOL-MYERS SQUIBB COMPANY-16076820

PATIENT
  Age: 65 Year
  Sex: Male
  Weight: 70 kg

DRUGS (2)
  1. LIDOCAINE [Concomitant]
  2. KENALOG-40 [Suspect]
     Indication: SCIATICA
     Dosage: 1 DF = 2 INJ ON 22JUL2011. 1CC/40MG KENALOG *1
     Route: 030
     Dates: start: 20110708

REACTIONS (12)
  - DYSTONIA [None]
  - DIZZINESS [None]
  - VOMITING [None]
  - OEDEMA PERIPHERAL [None]
  - PNEUMONIA [None]
  - SENSATION OF HEAVINESS [None]
  - ATAXIA [None]
  - FALL [None]
  - HYPERTENSION [None]
  - VISION BLURRED [None]
  - SPEECH DISORDER [None]
  - HALLUCINATION [None]
